FAERS Safety Report 12203793 (Version 3)
Quarter: 2016Q2

REPORT INFORMATION
  Report Type: Report from Study
  Country: US (occurrence: US)
  Receive Date: 20160323
  Receipt Date: 20160408
  Transmission Date: 20160815
  Serious: Yes (Hospitalization)
  Sender: FDA-Public Use
  Company Number: US-SA-2016SA020308

PATIENT
  Age: 49 Year
  Sex: Female

DRUGS (3)
  1. LANTUS SOLOSTAR [Suspect]
     Active Substance: INSULIN GLARGINE
     Indication: DIABETES MELLITUS
     Dosage: DOSE:65 UNIT(S)
     Route: 065
     Dates: start: 201511
  2. SOLOSTAR [Suspect]
     Active Substance: DEVICE
     Indication: DIABETES MELLITUS
     Dates: start: 201511
  3. LANTUS SOLOSTAR [Suspect]
     Active Substance: INSULIN GLARGINE
     Indication: DIABETES MELLITUS
     Dosage: DOSE:124 UNIT(S)
     Route: 058

REACTIONS (8)
  - Myocardial infarction [Unknown]
  - Pain in extremity [Unknown]
  - Depression [Unknown]
  - Feeling abnormal [Unknown]
  - Diabetic complication [Unknown]
  - Malaise [Unknown]
  - Blood glucose increased [Unknown]
  - Product use issue [Unknown]
